FAERS Safety Report 5131268-4 (Version None)
Quarter: 2006Q4

REPORT INFORMATION
  Report Type: 
  Country: None (occurrence: None)
  Receive Date: 20061020
  Receipt Date: 20061006
  Transmission Date: 20070319
  Serious: Yes (Hospitalization, Disabling)
  Sender: FDA-Public Use
  Company Number: PHBS2006CH15529

PATIENT
  Age: 83 Year
  Sex: Male

DRUGS (15)
  1. LEPONEX [Suspect]
     Indication: HALLUCINATION, VISUAL
     Dosage: 12.5 MG/DAY
     Dates: start: 20060819, end: 20060913
  2. SINEMET [Suspect]
     Indication: PARKINSON'S DISEASE
     Dosage: UNK, UNK
     Dates: start: 20030301, end: 20060803
  3. SINEMET [Suspect]
     Dosage: 200/50 X4/DAY
     Dates: start: 20060803
  4. HALDOL [Suspect]
     Indication: HALLUCINATION, VISUAL
     Dosage: 0.3 MG, ONCE/SINGLE
     Dates: start: 20060809, end: 20060809
  5. SEROQUEL [Suspect]
     Indication: HALLUCINATION, VISUAL
     Dosage: 12.5 MG/DAY
     Dates: start: 20060810, end: 20060815
  6. NEURONTIN [Suspect]
     Indication: AGITATION
     Dosage: 100 MG/DAY
     Dates: start: 20060814
  7. EFFEXOR [Suspect]
     Indication: DEPRESSION
     Dates: start: 20060822
  8. TOLTERODINE [Concomitant]
     Indication: STRESS URINARY INCONTINENCE
     Dosage: 4 MG/DAY
     Dates: end: 20060901
  9. FOSAMAX [Concomitant]
     Indication: OSTEOPOROSIS
     Dosage: 70 MG, QW
     Dates: start: 20060301
  10. BIOREX FEIGENSIRUP [Concomitant]
     Indication: CONSTIPATION
     Dosage: 3 DF/DAY
     Dates: start: 20060724
  11. MOVICOL [Concomitant]
     Indication: CONSTIPATION
     Dosage: 1 DF/DAY
     Dates: start: 20060814
  12. MG 5 - LONGORAL [Concomitant]
     Indication: MAGNESIUM DEFICIENCY
     Dosage: 10 MMOL/DAY
     Dates: start: 20060906
  13. CALCIMAGON-D3 [Concomitant]
     Indication: OSTEOPOROSIS
     Dosage: 1000 MG/DAY
     Dates: start: 20060301
  14. TRUSOPT [Concomitant]
     Indication: OPEN ANGLE GLAUCOMA
     Dosage: 2 DROPS/DAY
     Route: 031
  15. FLORINEF [Concomitant]
     Indication: ORTHOSTATIC HYPOTENSION
     Dosage: 0.2 MG/DAY
     Dates: start: 20060815

REACTIONS (8)
  - AGITATION [None]
  - CONFUSIONAL STATE [None]
  - FALL [None]
  - HAEMATOCRIT DECREASED [None]
  - HAEMOGLOBIN DECREASED [None]
  - NORMOCHROMIC NORMOCYTIC ANAEMIA [None]
  - SOMNOLENCE [None]
  - STUPOR [None]
